FAERS Safety Report 6686708-6 (Version None)
Quarter: 2010Q2

REPORT INFORMATION
  Report Type: 
  Country: None (occurrence: None)
  Receive Date: 20100415
  Receipt Date: 20100405
  Transmission Date: 20101027
  Serious: Yes (Hospitalization)
  Sender: FDA-Public Use
  Company Number: 2010AC000026

PATIENT
  Age: 58 Year
  Sex: Male
  Weight: 132.4503 kg

DRUGS (18)
  1. DIGOXIN [Suspect]
     Dosage: 250 MCG; QD; PO
     Route: 048
     Dates: start: 20030301, end: 20090101
  2. DIGOXIN [Suspect]
     Indication: LEFT VENTRICULAR DYSFUNCTION
     Dosage: .250 MG;QD;PO
     Route: 048
     Dates: start: 20021102, end: 20090301
  3. NITROGLYCERIN [Concomitant]
  4. ALTACE [Concomitant]
  5. ASPIRIN [Concomitant]
  6. SPIRONOLACTONE [Concomitant]
  7. LASIX [Concomitant]
  8. COREG [Concomitant]
  9. AMIODARONE [Concomitant]
  10. ISOSORBIDE DINITRATE [Concomitant]
  11. LIPITOR [Concomitant]
  12. MEXILATINE [Concomitant]
  13. COREG [Concomitant]
  14. ASPIRIN [Concomitant]
  15. FUROSEMIDE [Concomitant]
  16. SPIRONOLACTONE [Concomitant]
  17. ALTACE [Concomitant]
  18. LISINOPRIL [Concomitant]

REACTIONS (21)
  - AORTIC VALVE CALCIFICATION [None]
  - CARDIAC FAILURE CONGESTIVE [None]
  - DEVICE MALFUNCTION [None]
  - ECONOMIC PROBLEM [None]
  - EMOTIONAL DISORDER [None]
  - FATIGUE [None]
  - FLATULENCE [None]
  - HYPERLIPIDAEMIA [None]
  - HYPOTENSION [None]
  - ISCHAEMIC CARDIOMYOPATHY [None]
  - LEFT ATRIAL DILATATION [None]
  - LEFT VENTRICULAR DYSFUNCTION [None]
  - MITRAL VALVE INCOMPETENCE [None]
  - MYOCARDIAL INFARCTION [None]
  - PAIN [None]
  - PAIN IN EXTREMITY [None]
  - PHOTOSENSITIVITY REACTION [None]
  - SINUS BRADYCARDIA [None]
  - THYROIDITIS [None]
  - TYPE 2 DIABETES MELLITUS [None]
  - WEIGHT INCREASED [None]
